FAERS Safety Report 9689107 (Version 1)
Quarter: 2013Q4

REPORT INFORMATION
  Report Type: Spontaneous
  Country: US (occurrence: None)
  Receive Date: 20131113
  Receipt Date: 20131113
  Transmission Date: 20140711
  Serious: Yes (Hospitalization)
  Sender: FDA-Public Use
  Company Number: AUR-APL-2013-09407

PATIENT
  Age: 24 Year
  Sex: Female

DRUGS (4)
  1. ACICLOVIR [Suspect]
     Indication: EVIDENCE BASED TREATMENT
     Route: 042
  2. FOSCARNET [Suspect]
     Indication: EVIDENCE BASED TREATMENT
     Route: 042
  3. AZITHROMYCIN (AZITHROMYCIN) [Concomitant]
  4. PIPERACILLIN +TAZOBACTAM  (PIP/TAZO) [Concomitant]

REACTIONS (25)
  - Lung consolidation [None]
  - Hepatic failure [None]
  - Condition aggravated [None]
  - Disseminated intravascular coagulation [None]
  - Genital ulceration [None]
  - Pancytopenia [None]
  - Hypotension [None]
  - Acute respiratory failure [None]
  - Mental status changes [None]
  - Hepatic encephalopathy [None]
  - Herpes simplex meningoencephalitis [None]
  - Hepatitis fulminant [None]
  - Simplex virus test positive [None]
  - No therapeutic response [None]
  - Pathogen resistance [None]
  - Labour induction [None]
  - Maternal exposure during pregnancy [None]
  - Hypofibrinogenaemia [None]
  - Postpartum haemorrhage [None]
  - Herpes simplex hepatitis [None]
  - Multi-organ failure [None]
  - Hypoxia [None]
  - Viraemia [None]
  - Blood lactic acid increased [None]
  - Leukopenia [None]
